FAERS Safety Report 20036328 (Version 1)
Quarter: 2021Q4

REPORT INFORMATION
  Report Type: Report from Study
  Country: DE (occurrence: None)
  Receive Date: 20211105
  Receipt Date: 20211105
  Transmission Date: 20220303
  Serious: Yes (Hospitalization)
  Sender: FDA-Public Use
  Company Number: DE-ROCHE-2944848

PATIENT
  Age: 47 Year
  Sex: Female
  Weight: 62 kg

DRUGS (3)
  1. ATEZOLIZUMAB [Suspect]
     Active Substance: ATEZOLIZUMAB
     Indication: Glioblastoma
     Dosage: DOSE OF LAST ADMINISTRATION PRIOR TO SAE (SERIOUS ADVERSE EVENT) ONSET: 12/OCT/2021.
     Route: 042
     Dates: start: 20210921
  2. PANTOPRAZOLE [Concomitant]
     Active Substance: PANTOPRAZOLE
     Indication: Prophylaxis
     Dates: start: 202108, end: 20211021
  3. CITALOPRAM [Concomitant]
     Active Substance: CITALOPRAM HYDROBROMIDE
     Indication: Depression
     Dosage: DOSE: 60 MG/D
     Dates: start: 202107, end: 20211021

REACTIONS (1)
  - Intracranial pressure increased [Not Recovered/Not Resolved]

NARRATIVE: CASE EVENT DATE: 20211022
